FAERS Safety Report 5151495-X (Version None)
Quarter: 2006Q4

REPORT INFORMATION
  Report Type: 
  Country: None (occurrence: None)
  Receive Date: 20061114
  Receipt Date: 20061114
  Transmission Date: 20070319
  Serious: No
  Sender: FDA-Public Use
  Company Number: None

PATIENT
  Age: 17 Year
  Sex: Female
  Weight: 83.9154 kg

DRUGS (1)
  1. ACETAMINOPHEN   NON ASPIRIN PAIN RELIEF  500 MG   SUPERVALUE INC [Suspect]
     Indication: DYSMENORRHOEA
     Dosage: 2 TABLETS    4 X DAILY   PO
     Route: 048
     Dates: start: 20061102, end: 20061109

REACTIONS (3)
  - PHARMACEUTICAL PRODUCT COMPLAINT [None]
  - POOR QUALITY DRUG ADMINISTERED [None]
  - STOMACH DISCOMFORT [None]
